FAERS Safety Report 5334280-5 (Version None)
Quarter: 2007Q2

REPORT INFORMATION
  Report Type: 
  Country: None (occurrence: None)
  Receive Date: 20070525
  Receipt Date: 20070515
  Transmission Date: 20071010
  Serious: Yes (Hospitalization)
  Sender: FDA-Public Use
  Company Number: PHEH2007US04519

PATIENT
  Age: 74 Year
  Sex: Male

DRUGS (5)
  1. ZELNORM [Suspect]
     Indication: CONSTIPATION
     Dosage: 6 MG, QD
     Route: 048
     Dates: start: 20061214, end: 20061229
  2. CIPRO [Concomitant]
     Dosage: 250 MG, QD
  3. CELLCEPT [Concomitant]
     Dosage: 500 MG, BID
     Route: 048
  4. LASIX [Concomitant]
     Indication: CARDIAC FAILURE
     Dosage: 20 UNK, UNK
  5. PREDNISONE TAB [Concomitant]
     Dosage: 20 UNK, QD
     Route: 048

REACTIONS (4)
  - ABDOMINAL PAIN [None]
  - DIARRHOEA [None]
  - GASTROINTESTINAL TUBE INSERTION [None]
  - ILEUS [None]
